FAERS Safety Report 17767648 (Version 1)
Quarter: 2020Q2

REPORT INFORMATION
  Report Type: Spontaneous
  Country: DE (occurrence: DE)
  Receive Date: 20200511
  Receipt Date: 20200511
  Transmission Date: 20200714
  Serious: Yes (Other)
  Sender: FDA-Public Use
  Company Number: DE-MYLANLABS-2020M1045610

PATIENT
  Age: 61 Year
  Sex: Male

DRUGS (43)
  1. VALSARTAN DURA [Suspect]
     Active Substance: VALSARTAN
     Indication: PRODUCT USED FOR UNKNOWN INDICATION
     Dosage: 80 MG, PER DAY
     Route: 048
     Dates: start: 201908, end: 2019
  2. BAYCUTEN HC [Concomitant]
     Dosage: UNK
     Dates: start: 201502, end: 2015
  3. PARACODIN N                        /00063002/ [Concomitant]
     Dosage: UNK
     Dates: start: 201603, end: 2016
  4. BETAGALEN [Concomitant]
     Dosage: UNK
     Dates: start: 201908
  5. METOPROLOLSUCCINAT STADA [Concomitant]
     Dosage: 95 MG
     Dates: start: 201401, end: 2015
  6. VALSARTAN. [Suspect]
     Active Substance: VALSARTAN
     Indication: PRODUCT USED FOR UNKNOWN INDICATION
     Dosage: 80 MG, PER DAY
     Route: 048
     Dates: start: 201411, end: 2018
  7. NITROLINGUAL [Concomitant]
     Active Substance: NITROGLYCERIN
     Dosage: UNK
     Dates: start: 201605, end: 2017
  8. PANTOPRAZOL TAD [Concomitant]
     Active Substance: PANTOPRAZOLE SODIUM
     Dosage: UNK
     Dates: start: 201412
  9. METOPROLOLSUCCINAT AL [Concomitant]
     Active Substance: METOPROLOL SUCCINATE
     Dosage: 95 MG
     Dates: start: 201404, end: 2017
  10. ATORVASTATIN ABZ [Concomitant]
     Active Substance: ATORVASTATIN SODIUM
     Dosage: UNK
     Dates: start: 201805, end: 2018
  11. DOXYCYCLIN 1A PHARMA [Concomitant]
     Active Substance: DOXYCYCLINE
     Dosage: UNK
     Dates: start: 201503, end: 2015
  12. NOVAMINSULFON 1 A PHARMA [Concomitant]
     Active Substance: METAMIZOLE SODIUM
     Dosage: UNK
     Dates: start: 201806, end: 2018
  13. ATORVASTATIN ABZ [Concomitant]
     Active Substance: ATORVASTATIN SODIUM
     Dosage: 10 MG
     Route: 048
     Dates: start: 201312, end: 2018
  14. CIPROFLOXACIN. [Concomitant]
     Active Substance: CIPROFLOXACIN
     Dosage: UNK
     Dates: start: 201501, end: 2015
  15. ATORVASTATIN 1A PHARMA [Concomitant]
     Active Substance: ATORVASTATIN
     Dosage: UNK
     Dates: start: 201408, end: 2014
  16. NOVAMINSULFON LICHTENSTEIN [Concomitant]
     Active Substance: METAMIZOLE SODIUM
     Dosage: UNK
     Dates: start: 201508, end: 2018
  17. DICLOFENAC [Concomitant]
     Active Substance: DICLOFENAC
     Dosage: UNK
     Dates: start: 201412
  18. CEFUROX BASICS SUN [Concomitant]
     Dosage: UNK
     Dates: start: 201408, end: 2014
  19. VALSARTAN 1A PHARMA [Suspect]
     Active Substance: VALSARTAN
     Indication: PRODUCT USED FOR UNKNOWN INDICATION
     Dosage: 80 MG, PER DAY
     Route: 048
     Dates: start: 201712, end: 2018
  20. DIAZEPAM-RATIOPHARM [Concomitant]
     Dosage: 10 MILLIGRAM PER MILLILITRE
     Route: 048
     Dates: start: 201312, end: 2017
  21. IBUPROFEN AL [Concomitant]
     Active Substance: IBUPROFEN
     Dosage: UNK
     Dates: start: 201707, end: 2017
  22. INFECTOTRIMET [Concomitant]
     Dosage: UNK
     Dates: start: 201604, end: 2016
  23. TAMSULOSIN [Concomitant]
     Active Substance: TAMSULOSIN
     Dosage: UNK
     Dates: start: 201604, end: 2016
  24. CINNARIZIN DIMENHYDRINAT [Concomitant]
     Dosage: UNK
     Dates: start: 201705, end: 2017
  25. CIPROFLOXACIN ARISTO [Concomitant]
     Active Substance: CIPROFLOXACIN HYDROCHLORIDE
     Dosage: UNK
     Dates: start: 201503, end: 2016
  26. BECLOMETASON [Concomitant]
     Active Substance: BECLOMETHASONE DIPROPIONATE
     Dosage: UNK
     Dates: start: 201901, end: 2019
  27. METOPROLOL RATIOPHARM              /00376902/ [Concomitant]
  28. ATORVASTATIN HEXAL [Concomitant]
     Active Substance: ATORVASTATIN
     Dosage: UNK
     Dates: start: 201411, end: 2014
  29. VALSARTAN HEXAL [Suspect]
     Active Substance: VALSARTAN
     Indication: PRODUCT USED FOR UNKNOWN INDICATION
     Dosage: 80 MG, PER DAY
     Route: 048
     Dates: start: 201311, end: 2014
  30. METOHEXAL                          /00376903/ [Concomitant]
     Active Substance: METOPROLOL SUCCINATE
     Dosage: UNK
     Dates: start: 201501, end: 2018
  31. FINASTERID AUROBINDO [Concomitant]
     Dosage: UNK
     Dates: start: 201705, end: 2019
  32. CIPROFLOXACIN AL [Concomitant]
     Active Substance: CIPROFLOXACIN
     Dosage: UNK
     Dates: start: 201406, end: 2014
  33. ATORVASTATIN [Concomitant]
     Active Substance: ATORVASTATIN
     Dosage: UNK
     Dates: start: 201907, end: 2019
  34. DOXYCYCLIN AL                      /00055702/ [Concomitant]
     Dosage: UNK
     Dates: start: 201504, end: 2015
  35. METRONIDAZOL                       /00012501/ [Concomitant]
     Active Substance: METRONIDAZOLE
     Dosage: UNK
     Dates: start: 201501, end: 2015
  36. DICLOFENAC RATIOPHARM              /00372302/ [Concomitant]
     Active Substance: DICLOFENAC SODIUM
     Dosage: UNK
     Dates: start: 201701, end: 2017
  37. VALSACOR [Suspect]
     Active Substance: VALSARTAN
     Indication: PRODUCT USED FOR UNKNOWN INDICATION
     Dosage: 80 MG, PER DAY
     Route: 048
     Dates: start: 201811, end: 2019
  38. IBUPROFEN. [Concomitant]
     Active Substance: IBUPROFEN
     Dosage: UNK
     Dates: start: 201806, end: 2018
  39. IBUPROFEN AL [Concomitant]
     Active Substance: IBUPROFEN
     Dosage: UNK
     Dates: start: 201504, end: 2015
  40. ATORVASTATIN BASICS [Concomitant]
     Active Substance: ATORVASTATIN
     Dosage: UNK
     Dates: start: 201507, end: 2015
  41. ATORVASTATIN ARISTO [Concomitant]
     Dosage: UNK
     Dates: start: 201503, end: 2016
  42. DIAZEPAM. [Concomitant]
     Active Substance: DIAZEPAM
     Dosage: UNK
     Dates: start: 201504, end: 2019
  43. METRONIDAZOL AL [Concomitant]
     Dosage: UNK
     Dates: start: 201406, end: 2014

REACTIONS (1)
  - Malignant melanoma stage I [Recovered/Resolved]

NARRATIVE: CASE EVENT DATE: 201908
